FAERS Safety Report 7300270-6 (Version None)
Quarter: 2011Q1

REPORT INFORMATION
  Report Type: 
  Country: None (occurrence: None)
  Receive Date: 20110217
  Receipt Date: 20110203
  Transmission Date: 20110831
  Serious: No
  Sender: FDA-Public Use
  Company Number: US-BIOGENIDEC-2011BI005060

PATIENT
  Sex: Female

DRUGS (1)
  1. TYSABRI [Suspect]
     Indication: MULTIPLE SCLEROSIS
     Route: 042
     Dates: start: 20081125

REACTIONS (5)
  - VITAMIN D DECREASED [None]
  - HEART RATE INCREASED [None]
  - PALPITATIONS [None]
  - MULTIPLE SCLEROSIS [None]
  - FATIGUE [None]
